FAERS Safety Report 9709777 (Version 1)
Quarter: 2013Q4

REPORT INFORMATION
  Report Type: Spontaneous
  Country: TR (occurrence: TR)
  Receive Date: 20131126
  Receipt Date: 20131126
  Transmission Date: 20140711
  Serious: Yes (Hospitalization)
  Sender: FDA-Public Use
  Company Number: TR-BRISTOL-MYERS SQUIBB COMPANY-19833961

PATIENT
  Age: 54 Year
  Sex: Male

DRUGS (1)
  1. COUMADIN TABS [Suspect]
     Dosage: INITALLY 5MG TABS
     Route: 048
     Dates: start: 2006

REACTIONS (2)
  - Gastric haemorrhage [Recovered/Resolved]
  - Medication error [Unknown]
